FAERS Safety Report 21365231 (Version 2)
Quarter: 2022Q4

REPORT INFORMATION
  Report Type: Spontaneous
  Country: JP (occurrence: JP)
  Receive Date: 20220922
  Receipt Date: 20221005
  Transmission Date: 20230112
  Serious: Yes (Hospitalization, Disabling, Other)
  Sender: FDA-Public Use
  Company Number: JP-MYLANLABS-2022M1094775

PATIENT
  Age: 70 Year
  Sex: Female

DRUGS (8)
  1. VERAPAMIL [Interacting]
     Active Substance: VERAPAMIL HYDROCHLORIDE
     Indication: Mitral valve incompetence
     Dosage: 120 MILLIGRAM, QD
     Route: 048
     Dates: start: 2018
  2. VERAPAMIL [Interacting]
     Active Substance: VERAPAMIL HYDROCHLORIDE
     Indication: Annuloplasty
  3. VERAPAMIL [Interacting]
     Active Substance: VERAPAMIL HYDROCHLORIDE
     Indication: Left atrial appendage closure implant
  4. VERAPAMIL [Interacting]
     Active Substance: VERAPAMIL HYDROCHLORIDE
     Indication: Atrial fibrillation
  5. ERYTHROMYCIN [Interacting]
     Active Substance: ERYTHROMYCIN
     Indication: Bronchiectasis
     Dosage: 200 MILLIGRAM, QD
     Route: 065
     Dates: start: 2018
  6. BEPRIDIL HYDROCHLORIDE [Interacting]
     Active Substance: BEPRIDIL HYDROCHLORIDE
     Indication: Atrial fibrillation
     Dosage: 100 MILLIGRAM, QD
     Route: 065
     Dates: start: 2018
  7. BEPRIDIL HYDROCHLORIDE [Interacting]
     Active Substance: BEPRIDIL HYDROCHLORIDE
     Indication: Mitral valve incompetence
  8. EDOXABAN [Concomitant]
     Active Substance: EDOXABAN
     Dosage: UNK
     Route: 065

REACTIONS (5)
  - Electrocardiogram QT prolonged [Recovered/Resolved with Sequelae]
  - Cardiac arrest [Recovered/Resolved with Sequelae]
  - Ventricular fibrillation [Recovered/Resolved with Sequelae]
  - Drug interaction [Unknown]
  - Blood potassium decreased [Unknown]

NARRATIVE: CASE EVENT DATE: 20220201
